FAERS Safety Report 19026128 (Version 2)
Quarter: 2021Q3

REPORT INFORMATION
  Report Type: Report from Study
  Country: GB (occurrence: GB)
  Receive Date: 20210318
  Receipt Date: 20210823
  Transmission Date: 20211014
  Serious: Yes (Other)
  Sender: FDA-Public Use
  Company Number: GB-UCBSA-2021007427

PATIENT
  Age: 25 Year
  Sex: Female

DRUGS (4)
  1. CERTOLIZUMAB PEGOL JIA [Suspect]
     Active Substance: CERTOLIZUMAB PEGOL
     Dosage: 200 MILLIGRAM, EV 2 WEEKS(QOW)
     Route: 058
  2. CERTOLIZUMAB PEGOL JIA [Suspect]
     Active Substance: CERTOLIZUMAB PEGOL
     Indication: JUVENILE IDIOPATHIC ARTHRITIS
     Dosage: 400 MILLIGRAM, EV 2 WEEKS(QOW)
     Route: 058
     Dates: start: 20210211
  3. ABX [Concomitant]
     Indication: POSTOPERATIVE WOUND INFECTION
  4. ABX [Concomitant]
     Indication: UTERINE INFECTION

REACTIONS (5)
  - Juvenile idiopathic arthritis [Unknown]
  - Maternal exposure during pregnancy [Unknown]
  - Uterine infection [Recovered/Resolved]
  - Postoperative wound infection [Recovered/Resolved]
  - COVID-19 [Unknown]

NARRATIVE: CASE EVENT DATE: 20210211
